FAERS Safety Report 9292913 (Version 1)
Quarter: 2013Q2

REPORT INFORMATION
  Report Type: Spontaneous
  Country: GB (occurrence: GB)
  Receive Date: 20130516
  Receipt Date: 20130516
  Transmission Date: 20140414
  Serious: Yes (Disabling)
  Sender: FDA-Public Use
  Company Number: GB-PFIZER INC-2013149106

PATIENT
  Age: 46 Year
  Sex: Female

DRUGS (2)
  1. SERTRALINE [Concomitant]
     Dosage: UNK
  2. CHAMPIX [Suspect]
     Indication: SMOKING CESSATION THERAPY
     Dosage: UNK

REACTIONS (4)
  - Suicidal behaviour [Recovered/Resolved]
  - Depression [Recovered/Resolved]
  - Violence-related symptom [Recovered/Resolved]
  - Condition aggravated [Unknown]
